FAERS Safety Report 23630698 (Version 1)
Quarter: 2024Q1

REPORT INFORMATION
  Report Type: Report from Study
  Country: GB (occurrence: GB)
  Receive Date: 20240314
  Receipt Date: 20240314
  Transmission Date: 20240410
  Serious: Yes (Other)
  Sender: FDA-Public Use
  Company Number: GB-GILEAD-2024-0662465

PATIENT
  Sex: Male

DRUGS (1)
  1. LEDIPASVIR\SOFOSBUVIR [Suspect]
     Active Substance: LEDIPASVIR\SOFOSBUVIR
     Indication: Product used for unknown indication
     Dosage: 400MG/90MG, 1 PER DAY
     Route: 065
     Dates: start: 202111

REACTIONS (7)
  - Suicidal ideation [Unknown]
  - Pruritus [Unknown]
  - Asthenia [Unknown]
  - Eczema [Unknown]
  - Chest pain [Unknown]
  - Insomnia [Unknown]
  - Intentional dose omission [Unknown]
